FAERS Safety Report 7221835-6 (Version None)
Quarter: 2011Q1

REPORT INFORMATION
  Report Type: 
  Country: None (occurrence: None)
  Receive Date: 20110112
  Receipt Date: 20110105
  Transmission Date: 20110831
  Serious: Yes (Other)
  Sender: FDA-Public Use
  Company Number: A0902217A

PATIENT
  Age: 61 Year
  Sex: Male

DRUGS (5)
  1. XALATAN [Concomitant]
  2. OMEPRAZOLE [Concomitant]
     Dosage: 20MG PER DAY
  3. PROMACTA [Suspect]
     Indication: IDIOPATHIC THROMBOCYTOPENIC PURPURA
     Dosage: 75MG PER DAY
     Route: 048
     Dates: start: 20100810, end: 20101111
  4. METFORMIN [Concomitant]
     Dosage: 500MG TWICE PER DAY
  5. STARLIX [Concomitant]

REACTIONS (3)
  - HEPATITIS C [None]
  - DRUG INEFFECTIVE [None]
  - HEPATIC ENZYME INCREASED [None]
